FAERS Safety Report 5207949-0 (Version None)
Quarter: 2007Q1

REPORT INFORMATION
  Report Type: 
  Country: None (occurrence: None)
  Receive Date: 20070115
  Receipt Date: 20070110
  Transmission Date: 20070707
  Serious: Yes (Other)
  Sender: FDA-Public Use
  Company Number: US-ELI_LILLY_AND_COMPANY-US200609003690

PATIENT
  Age: 46 Year
  Sex: Female
  Weight: 72.562 kg

DRUGS (3)
  1. ZYPREXA [Suspect]
     Dosage: 5 MG, UNK
     Dates: start: 20010101, end: 20030701
  2. QUETIAPINE FUMARATE [Concomitant]
     Dates: start: 20030101, end: 20050901
  3. PREDNISONE TAB [Concomitant]

REACTIONS (4)
  - BLINDNESS TRANSIENT [None]
  - BLOOD GLUCOSE INCREASED [None]
  - CONFUSIONAL STATE [None]
  - DIABETES MELLITUS [None]
